FAERS Safety Report 5103747-7 (Version None)
Quarter: 2006Q3

REPORT INFORMATION
  Report Type: 
  Country: None (occurrence: None)
  Receive Date: 20060913
  Receipt Date: 20060410
  Transmission Date: 20061208
  Serious: Yes (Other)
  Sender: FDA-Public Use
  Company Number: 2006PK00705

PATIENT
  Age: 23419 Day
  Sex: Female
  Weight: 54 kg

DRUGS (3)
  1. NAROPIN [Suspect]
     Indication: LOCAL ANAESTHESIA
     Route: 053
  2. XYLONEST [Suspect]
     Indication: LOCAL ANAESTHESIA
     Route: 053
  3. LORAZEPAM [Concomitant]
     Indication: PREMEDICATION
     Dates: start: 20060404

REACTIONS (2)
  - CONVULSION [None]
  - HUMERUS FRACTURE [None]
